FAERS Safety Report 7496776-X (Version None)
Quarter: 2011Q2

REPORT INFORMATION
  Report Type: 
  Country: None (occurrence: None)
  Receive Date: 20110523
  Receipt Date: 20110516
  Transmission Date: 20111010
  Serious: Yes (Other)
  Sender: FDA-Public Use
  Company Number: B0720171A

PATIENT
  Sex: Male

DRUGS (7)
  1. HALCION [Concomitant]
     Route: 048
  2. LENDORMIN [Concomitant]
     Route: 048
  3. DESYREL [Concomitant]
     Route: 048
  4. LIPITOR [Concomitant]
     Route: 048
  5. DORAL [Concomitant]
     Route: 048
  6. PAXIL [Suspect]
     Dosage: 20MG PER DAY
     Route: 048
  7. LEVOTOMIN [Concomitant]
     Route: 065

REACTIONS (11)
  - HYPOAESTHESIA ORAL [None]
  - TOOTHACHE [None]
  - AGEUSIA [None]
  - AGGRESSION [None]
  - HYPOAESTHESIA [None]
  - NAUSEA [None]
  - AGITATION [None]
  - WEIGHT INCREASED [None]
  - HYPERHIDROSIS [None]
  - DRUG WITHDRAWAL SYNDROME [None]
  - HYPERACUSIS [None]
